FAERS Safety Report 4715786-6 (Version None)
Quarter: 2005Q3

REPORT INFORMATION
  Report Type: 
  Country: None (occurrence: None)
  Receive Date: 20050715
  Receipt Date: 20050602
  Transmission Date: 20060218
  Serious: No
  Sender: FDA-Public Use
  Company Number: DL2005162

PATIENT
  Age: 20 Year
  Sex: Female

DRUGS (2)
  1. MIFEPRISTONE TABLETS, 200 MG (DANCO LABS) [Suspect]
     Indication: ABORTION INDUCED
     Dosage: 200 MG, ORAL
     Route: 048
     Dates: start: 20050601
  2. MISOPROSTOL [Suspect]

REACTIONS (3)
  - HYPERSENSITIVITY [None]
  - RASH [None]
  - SWELLING FACE [None]
